FAERS Safety Report 25364330 (Version 1)
Quarter: 2025Q2

REPORT INFORMATION
  Report Type: Spontaneous
  Country: US (occurrence: None)
  Receive Date: 20250523
  Receipt Date: 20250523
  Transmission Date: 20250717
  Serious: No
  Sender: FDA-CTU
  Company Number: None

PATIENT
  Sex: Female

DRUGS (1)
  1. RINVOQ [Suspect]
     Active Substance: UPADACITINIB
     Indication: Ankylosing spondylitis
     Dosage: 15 MG DAILY ORAL ?
     Route: 048
     Dates: start: 20250429

REACTIONS (5)
  - Ankylosing spondylitis [None]
  - Drug ineffective [None]
  - Scleritis [None]
  - Uveitis [None]
  - Condition aggravated [None]
